FAERS Safety Report 8085361-7 (Version None)
Quarter: 2012Q1

REPORT INFORMATION
  Report Type: 
  Country: None (occurrence: None)
  Receive Date: 20120128
  Receipt Date: 20110608
  Transmission Date: 20120608
  Serious: Yes (Other)
  Sender: FDA-Public Use
  Company Number: PR-ABBOTT-11P-131-0703229-00

PATIENT
  Sex: Female
  Weight: 65.376 kg

DRUGS (5)
  1. HUMIRA [Suspect]
     Route: 058
     Dates: start: 20100801, end: 20101101
  2. HUMIRA [Suspect]
     Dates: start: 20110201, end: 20110301
  3. SYNTHROID [Concomitant]
     Indication: HYPOTHYROIDISM
     Dosage: 50MG DAILY
     Route: 048
  4. HUMIRA [Suspect]
     Indication: PSORIASIS
     Route: 058
     Dates: start: 20090101, end: 20100101
  5. HUMIRA [Suspect]
     Route: 058
     Dates: start: 20110101, end: 20110101

REACTIONS (4)
  - INFLUENZA [None]
  - RASH [None]
  - TACHYCARDIA [None]
  - ATRIAL FIBRILLATION [None]
